FAERS Safety Report 7817149-3 (Version None)
Quarter: 2011Q4

REPORT INFORMATION
  Report Type: 
  Country: None (occurrence: None)
  Receive Date: 20111017
  Receipt Date: 20111017
  Transmission Date: 20120403
  Serious: Yes (Hospitalization)
  Sender: FDA-Public Use
  Company Number: None

PATIENT
  Age: 47 Year
  Sex: Male
  Weight: 64.1 kg

DRUGS (2)
  1. CISPLATIN [Suspect]
     Indication: TESTIS CANCER RECURRENT
     Dosage: 36 MG
     Route: 042
     Dates: start: 20110822, end: 20111007
  2. ETOPOSIDE [Concomitant]
     Dosage: 180 MG
     Route: 042
     Dates: start: 20110822, end: 20111007

REACTIONS (6)
  - VOMITING [None]
  - FEBRILE NEUTROPENIA [None]
  - PANCYTOPENIA [None]
  - MALAISE [None]
  - DECREASED APPETITE [None]
  - NAUSEA [None]
